FAERS Safety Report 25263977 (Version 1)
Quarter: 2025Q2

REPORT INFORMATION
  Report Type: Spontaneous
  Country: DE (occurrence: None)
  Receive Date: 20250501
  Receipt Date: 20250501
  Transmission Date: 20250716
  Serious: Yes (Life-Threatening, Disabling)
  Sender: FDA-CTU
  Company Number: None

PATIENT
  Age: 36 Year
  Sex: Male
  Weight: 65 kg

DRUGS (1)
  1. SERTRALINE HYDROCHLORIDE [Suspect]
     Active Substance: SERTRALINE HYDROCHLORIDE
     Indication: Depression
     Dates: start: 20240515, end: 20240528

REACTIONS (5)
  - Skin disorder [None]
  - Muscle twitching [None]
  - Nonspecific reaction [None]
  - Suicidal ideation [None]
  - Sexual dysfunction [None]

NARRATIVE: CASE EVENT DATE: 20240515
